FAERS Safety Report 7959085-8 (Version None)
Quarter: 2011Q4

REPORT INFORMATION
  Report Type: 
  Country: None (occurrence: None)
  Receive Date: 20111206
  Receipt Date: 20111206
  Transmission Date: 20120403
  Serious: No
  Sender: FDA-Public Use
  Company Number: None

PATIENT
  Age: 56 Year
  Sex: Female
  Weight: 58.967 kg

DRUGS (1)
  1. TRIAMCINOLONE [Suspect]
     Dosage: SMALL AMOUNT TO AFFECTED AREA
     Route: 061

REACTIONS (3)
  - RASH ERYTHEMATOUS [None]
  - APPLICATION SITE DRYNESS [None]
  - RASH PRURITIC [None]
